FAERS Safety Report 20330155 (Version 1)
Quarter: 2022Q1

REPORT INFORMATION
  Report Type: Report from Study
  Country: DO (occurrence: DO)
  Receive Date: 20220113
  Receipt Date: 20220113
  Transmission Date: 20220423
  Serious: Yes (Other)
  Sender: FDA-Public Use
  Company Number: DO-ABBVIE-22K-279-4231658-00

PATIENT
  Age: 53 Year
  Sex: Female
  Weight: 46.308 kg

DRUGS (2)
  1. HUMIRA [Suspect]
     Active Substance: ADALIMUMAB
     Indication: Colitis ulcerative
     Route: 058
     Dates: start: 20150319, end: 20211103
  2. AZORAN [Concomitant]
     Indication: Colitis ulcerative
     Route: 048
     Dates: start: 2020

REACTIONS (11)
  - Depression [Recovering/Resolving]
  - Haemorrhage [Recovering/Resolving]
  - Colitis ulcerative [Recovering/Resolving]
  - Malaise [Not Recovered/Not Resolved]
  - Arthralgia [Recovering/Resolving]
  - Pain [Recovering/Resolving]
  - Asthenia [Recovering/Resolving]
  - Discomfort [Recovering/Resolving]
  - Constipation [Recovering/Resolving]
  - Gastrointestinal pain [Not Recovered/Not Resolved]
  - Influenza [Recovered/Resolved]

NARRATIVE: CASE EVENT DATE: 20211201
